FAERS Safety Report 4837735-2 (Version None)
Quarter: 2005Q4

REPORT INFORMATION
  Report Type: 
  Country: None (occurrence: None)
  Receive Date: 20051128
  Receipt Date: 20051116
  Transmission Date: 20060501
  Serious: Yes (Hospitalization)
  Sender: FDA-Public Use
  Company Number: FR-AVENTIS-200513765FR

PATIENT
  Age: 73 Year
  Sex: Male

DRUGS (11)
  1. TAXOTERE [Suspect]
     Indication: METASTASES TO BONE
     Route: 042
     Dates: start: 20050726, end: 20050726
  2. TAXOTERE [Suspect]
     Indication: PROSTATE CANCER METASTATIC
     Route: 042
     Dates: start: 20050726, end: 20050726
  3. ZOMETA [Suspect]
     Indication: METASTASES TO BONE
     Route: 042
     Dates: start: 20050721, end: 20050721
  4. ZOMETA [Suspect]
     Indication: PROSTATE CANCER METASTATIC
     Route: 042
     Dates: start: 20050721, end: 20050721
  5. HYZAAR [Concomitant]
     Route: 048
  6. CORVASAL [Concomitant]
     Route: 048
  7. SOTALOL HCL [Concomitant]
     Route: 048
  8. PLAVIX [Concomitant]
     Route: 048
  9. ALLOPURINOL [Concomitant]
     Route: 048
  10. LEVOTHYROX [Concomitant]
     Route: 048
  11. DIAMICRON [Concomitant]
     Route: 048

REACTIONS (1)
  - HAEMOLYTIC URAEMIC SYNDROME [None]
